FAERS Safety Report 4861294-1 (Version None)
Quarter: 2005Q4

REPORT INFORMATION
  Report Type: 
  Country: None (occurrence: None)
  Receive Date: 20051220
  Receipt Date: 20050601
  Transmission Date: 20060501
  Serious: Yes (Hospitalization)
  Sender: FDA-Public Use
  Company Number: US-MERCK-0506USA00740

PATIENT
  Age: 67 Year
  Sex: Male

DRUGS (1)
  1. VIOXX [Suspect]
     Route: 048
     Dates: end: 20030723

REACTIONS (5)
  - BLOOD THYROID STIMULATING HORMONE INCREASED [None]
  - CEREBROVASCULAR ACCIDENT [None]
  - HYPERLIPIDAEMIA [None]
  - HYPERTENSION [None]
  - MYOCARDIAL ISCHAEMIA [None]
